FAERS Safety Report 4410911-9 (Version None)
Quarter: 2004Q3

REPORT INFORMATION
  Report Type: 
  Country: None (occurrence: None)
  Receive Date: 20040726
  Receipt Date: 20040712
  Transmission Date: 20050211
  Serious: Yes (Death)
  Sender: FDA-Public Use
  Company Number: MK200407-0110-1

PATIENT

DRUGS (1)
  1. HYDROCODONE/APAP TABLETS 10MG/650MG [Suspect]
     Dosage: 10/650MG

REACTIONS (1)
  - OVERDOSE [None]
